FAERS Safety Report 4456285-9 (Version None)
Quarter: 2004Q3

REPORT INFORMATION
  Report Type: 
  Country: None (occurrence: None)
  Receive Date: 20040917
  Receipt Date: 20040826
  Transmission Date: 20050211
  Serious: Yes (Other)
  Sender: FDA-Public Use
  Company Number: US_0408105038

PATIENT
  Sex: Female

DRUGS (4)
  1. GEMZAR [Suspect]
     Indication: CARCINOMA
     Dosage: 600 MG/M2 OTHER
  2. CISPLATIN [Concomitant]
  3. KYTRIL [Concomitant]
  4. DEXAMETHASONE [Concomitant]

REACTIONS (2)
  - DRUG TOXICITY [None]
  - NEUROPATHY PERIPHERAL [None]
